FAERS Safety Report 7240266-6 (Version None)
Quarter: 2011Q1

REPORT INFORMATION
  Report Type: 
  Country: None (occurrence: None)
  Receive Date: 20110120
  Receipt Date: 20110120
  Transmission Date: 20110831
  Serious: Yes (Life-Threatening)
  Sender: FDA-Public Use
  Company Number: None

PATIENT
  Age: 59 Year
  Sex: Female
  Weight: 48.0813 kg

DRUGS (1)
  1. METFORMIN HCL [Suspect]
     Dosage: 1000 MLGRAMS 2 TIMES A DAY
     Dates: start: 19980501, end: 20090101

REACTIONS (5)
  - PANCREATIC DISORDER [None]
  - RENAL FAILURE [None]
  - WEIGHT DECREASED [None]
  - COMA [None]
  - COLLAPSE OF LUNG [None]
